FAERS Safety Report 6491880-7 (Version None)
Quarter: 2009Q4

REPORT INFORMATION
  Report Type: 
  Country: None (occurrence: None)
  Receive Date: 20091125
  Receipt Date: 20090817
  Transmission Date: 20100525
  Serious: Yes (Other)
  Sender: FDA-Public Use
  Company Number: 2009BH012842

PATIENT
  Age: 86 Year
  Sex: Male

DRUGS (11)
  1. DIANEAL [Suspect]
     Indication: PERITONEAL DIALYSIS
     Dosage: 8L; EVERY DAY; IP
     Route: 033
     Dates: end: 20050101
  2. DIANEAL [Suspect]
     Indication: PERITONEAL DIALYSIS
     Dosage: 2 L; EVERY DAY; IP
     Route: 033
     Dates: end: 20050101
  3. ALLOPURINOL [Concomitant]
  4. ATENOLOL [Concomitant]
  5. DOCUSATE SODIUM [Concomitant]
  6. EPOGEN [Concomitant]
  7. FUROSEMIDE [Concomitant]
  8. PRILOSEC [Concomitant]
  9. CALCIUM ACETATE [Concomitant]
  10. SIMVASTATIN [Concomitant]
  11. TYLENOL (CAPLET) [Concomitant]

REACTIONS (2)
  - PERITONEAL DIALYSIS COMPLICATION [None]
  - PERITONITIS BACTERIAL [None]
